FAERS Safety Report 26102422 (Version 1)
Quarter: 2025Q4

REPORT INFORMATION
  Report Type: Report from Study
  Country: KR (occurrence: KR)
  Receive Date: 20251128
  Receipt Date: 20251128
  Transmission Date: 20260117
  Serious: Yes (Death)
  Sender: ABBVIE
  Company Number: KR-PFIZER INC-PV202500138373

PATIENT
  Age: 90 Year
  Sex: Female
  Weight: 45 kg

DRUGS (25)
  1. AVIBACTAM SODIUM\CEFTAZIDIME [Suspect]
     Active Substance: AVIBACTAM SODIUM\CEFTAZIDIME
     Indication: Pneumonia
     Dosage: 0.752 VIAL, BID
     Route: 042
     Dates: start: 20251113
  2. Bolgre [Concomitant]
     Indication: Anaemia
     Route: 048
     Dates: start: 20251111
  3. ARICEPT [Concomitant]
     Active Substance: DONEPEZIL HYDROCHLORIDE
     Indication: Dementia
     Route: 048
  4. EDOXABAN TOSYLATE [Concomitant]
     Active Substance: EDOXABAN TOSYLATE
     Indication: Atrial fibrillation
  5. URSODIOL [Concomitant]
     Active Substance: URSODIOL
     Indication: Chronic hepatitis
     Dates: start: 20251021
  6. Dicamax [Concomitant]
     Indication: Prophylaxis
  7. MEMANTINE HYDROCHLORIDE [Concomitant]
     Active Substance: MEMANTINE HYDROCHLORIDE
     Indication: Dementia
  8. Mucopect [Concomitant]
     Indication: Infectious pleural effusion
  9. SULFAMETHOXAZOLE\TRIMETHOPRIM [Concomitant]
     Active Substance: SULFAMETHOXAZOLE\TRIMETHOPRIM
     Indication: Infection
     Dates: start: 20251113
  10. Acetphen premix [Concomitant]
     Indication: Infection
     Route: 042
     Dates: start: 20251106
  11. TRAMADOL HYDROCHLORIDE [Concomitant]
     Active Substance: TRAMADOL HYDROCHLORIDE
     Indication: Infectious pleural effusion
     Route: 042
     Dates: start: 20251114
  12. K contin [Concomitant]
     Indication: Prophylaxis
     Dates: start: 20251112, end: 20251114
  13. ERDOSTEINE [Concomitant]
     Active Substance: ERDOSTEINE
     Indication: Infectious pleural effusion
     Dates: start: 20250911
  14. LASIX [Concomitant]
     Active Substance: FUROSEMIDE
     Indication: Chronic kidney disease
     Route: 048
  15. LASIX [Concomitant]
     Active Substance: FUROSEMIDE
     Indication: Chronic kidney disease
     Route: 042
     Dates: start: 20251110, end: 20251111
  16. CHOLINE ALFOSCERATE [Concomitant]
     Active Substance: CHOLINE ALFOSCERATE
     Indication: Dementia
     Dosage: SYR
     Dates: start: 20230417
  17. MIRTAZAPINE [Concomitant]
     Active Substance: MIRTAZAPINE
     Indication: Adjustment disorder
  18. LOPERAMIDE [Concomitant]
     Active Substance: LOPERAMIDE
     Indication: Prophylaxis against diarrhoea
     Dates: end: 20251109
  19. Topocin [Concomitant]
     Indication: Infection
     Route: 042
     Dates: start: 20251107, end: 20251108
  20. Topocin [Concomitant]
     Indication: Infection
     Route: 042
     Dates: start: 20251114, end: 20251114
  21. Topocin [Concomitant]
     Indication: Infection
     Route: 042
     Dates: start: 20251111, end: 20251111
  22. DIGOXIN [Concomitant]
     Active Substance: DIGOXIN
     Indication: Atrial fibrillation
  23. MEROPENEM [Concomitant]
     Active Substance: MEROPENEM
     Indication: Infection
     Route: 042
     Dates: start: 20251107, end: 20251110
  24. Thrupass ODT [Concomitant]
     Indication: Prophylaxis
     Dates: start: 20250711
  25. ALBUMIN HUMAN [Concomitant]
     Active Substance: ALBUMIN HUMAN
     Indication: Chronic kidney disease
     Dosage: 20 %
     Route: 042
     Dates: start: 20251114, end: 20251115

REACTIONS (1)
  - Pneumonia [Fatal]

NARRATIVE: CASE EVENT DATE: 20251115
